FAERS Safety Report 18278471 (Version 2)
Quarter: 2020Q4

REPORT INFORMATION
  Report Type: Spontaneous
  Country: CZ (occurrence: CZ)
  Receive Date: 20200917
  Receipt Date: 20201102
  Transmission Date: 20210113
  Serious: Yes (Other)
  Sender: FDA-Public Use
  Company Number: CZ-BAYER-2020-193659

PATIENT
  Age: 70 Year
  Sex: Female

DRUGS (1)
  1. NEXAVAR [Suspect]
     Active Substance: SORAFENIB
     Indication: THYROID CANCER
     Dosage: 400 MG, BID
     Route: 048
     Dates: start: 201806, end: 201902

REACTIONS (5)
  - Thyroid cancer [None]
  - Palmar-plantar erythrodysaesthesia syndrome [Recovered/Resolved]
  - Neoplasm progression [None]
  - Lymphatic system neoplasm [None]
  - Metastases to lung [None]

NARRATIVE: CASE EVENT DATE: 201807
